FAERS Safety Report 5500367-7 (Version None)
Quarter: 2007Q4

REPORT INFORMATION
  Report Type: 
  Country: None (occurrence: None)
  Receive Date: 20071025
  Receipt Date: 20071010
  Transmission Date: 20080405
  Serious: Yes (Hospitalization)
  Sender: FDA-Public Use
  Company Number: B0489643A

PATIENT
  Age: 46 Year
  Sex: Female

DRUGS (4)
  1. CEFUROXIME AXETIL [Suspect]
     Indication: PHARYNGITIS
     Dosage: 250 MG / TWICE PER DAY /
  2. NIMESULIDE (FORMULATION UNKNOWN) (NIMESULIDE) [Suspect]
     Indication: PHARYNGITIS
     Dosage: 200 MG / PER DAY /
  3. ETHINYLOESTR.+ GESTODENE (FORMULATION UNKNOWN) (ETHINYLOESTR.+ GESTODE [Suspect]
     Dosage: ORAL
     Route: 048
  4. ALPRAZOLAM [Concomitant]

REACTIONS (6)
  - ARTHRALGIA [None]
  - HEPATITIS [None]
  - HEPATOTOXICITY [None]
  - LYMPHOCYTE TRANSFORMATION TEST POSITIVE [None]
  - PHARYNGITIS [None]
  - RASH [None]
